FAERS Safety Report 4338783-1 (Version None)
Quarter: 2004Q2

REPORT INFORMATION
  Report Type: 
  Country: None (occurrence: None)
  Receive Date: 20040414
  Receipt Date: 20040330
  Transmission Date: 20050107
  Serious: Yes (Other)
  Sender: FDA-Public Use
  Company Number: FR-BRISTOL-MYERS SQUIBB COMPANY-12553194

PATIENT
  Age: 59 Year
  Sex: Male

DRUGS (2)
  1. CETUXIMAB [Suspect]
     Indication: COLORECTAL CANCER
     Dosage: ADMINISTERED 23-MAR-2004, PT REC'D 6 DOSES
     Route: 042
     Dates: start: 20040217, end: 20040217
  2. IRINOTECAN [Suspect]
     Indication: COLORECTAL CANCER
     Dosage: PT REC'D 3 DOSES
     Route: 042
     Dates: start: 20040217

REACTIONS (4)
  - OEDEMA PERIPHERAL [None]
  - ONYCHOLYSIS [None]
  - ONYCHORRHEXIS [None]
  - TOE DEFORMITY [None]
